FAERS Safety Report 8860325 (Version 3)
Quarter: 2012Q4

REPORT INFORMATION
  Report Type: 
  Country: US (occurrence: US)
  Receive Date: 20121025
  Receipt Date: 20121128
  Transmission Date: 20130627
  Serious: Yes (Other)
  Sender: FDA-Public Use
  Company Number: US-PFIZER INC-2012265295

PATIENT
  Sex: Female

DRUGS (1)
  1. LYRICA [Suspect]
     Dosage: 75 mg, 2x/day
     Route: 048

REACTIONS (3)
  - Multiple sclerosis [Unknown]
  - Fibromyalgia [Unknown]
  - Nervousness [Unknown]
